FAERS Safety Report 6059372-7 (Version None)
Quarter: 2009Q1

REPORT INFORMATION
  Report Type: 
  Country: None (occurrence: None)
  Receive Date: 20090130
  Receipt Date: 20090122
  Transmission Date: 20090719
  Serious: Yes (Other)
  Sender: FDA-Public Use
  Company Number: US-WYE-H07819709

PATIENT
  Sex: Female

DRUGS (2)
  1. PREMARIN [Suspect]
  2. ESTRADERM [Suspect]

REACTIONS (2)
  - RENAL FAILURE CHRONIC [None]
  - SYSTEMIC LUPUS ERYTHEMATOSUS [None]
